FAERS Safety Report 4638708-5 (Version None)
Quarter: 2005Q2

REPORT INFORMATION
  Report Type: 
  Country: None (occurrence: None)
  Receive Date: 20050328
  Receipt Date: 20041221
  Transmission Date: 20051028
  Serious: No
  Sender: FDA-Public Use
  Company Number: US_0501111245

PATIENT
  Age: 10 Year
  Sex: Female

DRUGS (2)
  1. STRATTERA [Suspect]
     Dosage: 40 MG DAY
     Dates: start: 20030201, end: 20041201
  2. CONCERTA [Concomitant]

REACTIONS (1)
  - ARTERIAL SPASM [None]
